FAERS Safety Report 7684213-1 (Version None)
Quarter: 2011Q3

REPORT INFORMATION
  Report Type: 
  Country: None (occurrence: None)
  Receive Date: 20110815
  Receipt Date: 20110808
  Transmission Date: 20111222
  Serious: Yes (Disabling)
  Sender: FDA-Public Use
  Company Number: NL-MERCK-1108NLD00003

PATIENT
  Age: 50 Year
  Sex: Male

DRUGS (5)
  1. HYDROCHLOROTHIAZIDE [Concomitant]
     Route: 048
     Dates: start: 20100522
  2. AMLODIPINE BESYLATE AND PERINDOPRIL ARGININE [Concomitant]
     Route: 048
     Dates: start: 20100517
  3. CICLESONIDE [Concomitant]
     Route: 055
     Dates: start: 20090101
  4. ZOCOR [Suspect]
     Indication: PROPHYLAXIS
     Route: 048
     Dates: start: 20100521, end: 20110401
  5. ASPIRIN [Concomitant]
     Route: 048
     Dates: start: 20100522

REACTIONS (2)
  - MYALGIA [None]
  - COGNITIVE DISORDER [None]
